FAERS Safety Report 25171798 (Version 2)
Quarter: 2025Q2

REPORT INFORMATION
  Report Type: Spontaneous
  Country: US (occurrence: US)
  Receive Date: 20250408
  Receipt Date: 20250428
  Transmission Date: 20250717
  Serious: Yes (Hospitalization)
  Sender: DOMPE FARMACEUTICI
  Company Number: US-FARMAPROD-202503-1022

PATIENT
  Sex: Male

DRUGS (3)
  1. OXERVATE [Suspect]
     Active Substance: CENEGERMIN-BKBJ
     Indication: Neurotrophic keratopathy
     Route: 047
     Dates: start: 20250303
  2. OXERVATE [Suspect]
     Active Substance: CENEGERMIN-BKBJ
  3. DRY EYE OINTMENT [Concomitant]

REACTIONS (2)
  - Ostomy bag placement [Unknown]
  - Product dose omission issue [Unknown]
